FAERS Safety Report 21996975 (Version 6)
Quarter: 2023Q4

REPORT INFORMATION
  Report Type: Report from Study
  Country: IE (occurrence: IE)
  Receive Date: 20230215
  Receipt Date: 20231130
  Transmission Date: 20240109
  Serious: Yes (Other)
  Sender: FDA-Public Use
  Company Number: IE-JNJFOC-20230226043

PATIENT
  Age: 54 Year
  Sex: Male

DRUGS (7)
  1. IMBRUVICA [Suspect]
     Active Substance: IBRUTINIB
     Indication: Acromegaly
     Route: 048
     Dates: start: 20220510
  2. IMBRUVICA [Suspect]
     Active Substance: IBRUTINIB
     Indication: Acromegaly
     Route: 048
     Dates: start: 20220510
  3. OROVITE [Concomitant]
     Indication: Product used for unknown indication
     Route: 050
  4. VALACYCLOVIR HYDROCHLORIDE [Concomitant]
     Active Substance: VALACYCLOVIR HYDROCHLORIDE
     Indication: Product used for unknown indication
     Route: 050
  5. GABAPENTIN [Concomitant]
     Active Substance: GABAPENTIN
     Indication: Product used for unknown indication
     Route: 050
  6. PREGABALIN [Concomitant]
     Active Substance: PREGABALIN
     Indication: Product used for unknown indication
     Route: 050
  7. ALFACALCIDOL [Concomitant]
     Active Substance: ALFACALCIDOL
     Indication: Product used for unknown indication
     Dosage: 0.25 MCG
     Route: 050

REACTIONS (6)
  - Cataract [Recovered/Resolved]
  - Arthralgia [Unknown]
  - Haemoglobin decreased [Unknown]
  - Umbilical hernia [Unknown]
  - Infection [Not Recovered/Not Resolved]
  - Rash [Unknown]

NARRATIVE: CASE EVENT DATE: 20230101
